FAERS Safety Report 19145081 (Version 10)
Quarter: 2021Q3

REPORT INFORMATION
  Report Type: Report from Study
  Country: CN (occurrence: CN)
  Receive Date: 20210416
  Receipt Date: 20210927
  Transmission Date: 20211014
  Serious: Yes (Death, Life-Threatening, Hospitalization)
  Sender: FDA-Public Use
  Company Number: CN-ROCHE-2808485

PATIENT
  Age: 69 Year
  Sex: Male
  Weight: 58 kg

DRUGS (21)
  1. RECOMBINANT HUMAN ERYTHROPOIETIN [Concomitant]
     Active Substance: ERYTHROPOIETIN
     Dates: start: 20210319, end: 20210322
  2. CLOPIDOGREL BISULFATE. [Concomitant]
     Active Substance: CLOPIDOGREL BISULFATE
     Dates: start: 20210316, end: 20210318
  3. TRIMETAZIDINE HYDROCHLORIDE [Concomitant]
     Active Substance: TRIMETAZIDINE DIHYDROCHLORIDE
     Dates: start: 20210318, end: 20210322
  4. RIVAROXABAN [Concomitant]
     Active Substance: RIVAROXABAN
     Dates: start: 20210319, end: 20210320
  5. PLACEBO [Suspect]
     Active Substance: UNSPECIFIED INGREDIENT
     Indication: NON-SMALL CELL LUNG CANCER STAGE IV
     Dosage: ON 23/FEB/2021, THE PATIENT RECEIVED MOST RECENT DOSE PRIOR TO SERIOUS ADVERSE EVENT.
     Route: 041
     Dates: start: 20200730
  6. CREATINE PHOSPHATE SODIUM [Concomitant]
     Active Substance: CREATINE
     Dates: start: 20210316, end: 20210322
  7. ASPIRIN. [Concomitant]
     Active Substance: ASPIRIN
     Dates: start: 20210316, end: 20210320
  8. IVABRADINE HYDROCHLORIDE [Concomitant]
     Active Substance: IVABRADINE HYDROCHLORIDE
     Dates: start: 20210316, end: 20210316
  9. ENOXAPARIN SODIUM. [Concomitant]
     Active Substance: ENOXAPARIN SODIUM
     Dates: start: 20210316, end: 20210317
  10. PEMETREXED. [Suspect]
     Active Substance: PEMETREXED
     Indication: NON-SMALL CELL LUNG CANCER STAGE IV
     Dosage: ON 23/FEB/2021, THE PATIENT RECEIVED MOST RECENT DOSE 600 MG PRIOR TO SAE ONSET.
     Route: 042
     Dates: start: 20200730
  11. CARBOPLATIN. [Suspect]
     Active Substance: CARBOPLATIN
     Indication: NON-SMALL CELL LUNG CANCER STAGE IV
     Dosage: ON 14/OCT/2020, THE PATIENT RECEIVED MOST RECENT DOSE 200 MG PRIOR TO SERIOUS ADVERSE EVENT.
     Route: 042
     Dates: start: 20200730
  12. BEVACIZUMAB. [Suspect]
     Active Substance: BEVACIZUMAB
     Indication: NON-SMALL CELL LUNG CANCER STAGE IV
     Dosage: ON 23/MAR/2021 AND 23/FEB/2021 THE PATIENT RECEIVED MOST RECENT DOSE 920 MG PRIOR TO SERIOUS ADVERSE
     Route: 042
     Dates: start: 20200730
  13. ISOSORBIDE MONONITRATE. [Concomitant]
     Active Substance: ISOSORBIDE MONONITRATE
     Dates: start: 20210316, end: 20210322
  14. SODIUM BICARBONATE. [Concomitant]
     Active Substance: SODIUM BICARBONATE
     Dates: start: 20210315, end: 20210315
  15. COENZYME Q10 [Concomitant]
     Active Substance: DIETARY SUPPLEMENT\UBIDECARENONE
     Dates: start: 20210318, end: 20210322
  16. MONTELUKAST SODIUM. [Concomitant]
     Active Substance: MONTELUKAST SODIUM
     Indication: DYSPNOEA
     Dates: start: 20210318, end: 20210322
  17. AMIODARONE HYDROCHLORIDE. [Concomitant]
     Active Substance: AMIODARONE HYDROCHLORIDE
     Dates: start: 20210316, end: 20210316
  18. MONTMORILLONITE [Concomitant]
     Active Substance: MONTMORILLONITE
     Indication: DIARRHOEA
     Dates: start: 20210311, end: 20210311
  19. FUROSEMIDE. [Concomitant]
     Active Substance: FUROSEMIDE
     Indication: POLYURIA
     Dates: start: 20210315, end: 20210322
  20. IPRATROPIUM BROMIDE. [Concomitant]
     Active Substance: IPRATROPIUM BROMIDE
     Indication: DYSPNOEA
     Dates: start: 20210318, end: 20210322
  21. RECOMBINANT HUMAN THROMBOPOIETIN (UNK INGREDIENTS) [Concomitant]
     Dates: start: 20210319, end: 20210322

REACTIONS (2)
  - Coagulopathy [Not Recovered/Not Resolved]
  - Death [Fatal]

NARRATIVE: CASE EVENT DATE: 20210407
